FAERS Safety Report 6055644-0 (Version None)
Quarter: 2009Q1

REPORT INFORMATION
  Report Type: 
  Country: None (occurrence: None)
  Receive Date: 20090123
  Receipt Date: 20090108
  Transmission Date: 20090719
  Serious: Yes (Death)
  Sender: FDA-Public Use
  Company Number: 090113-0000041

PATIENT
  Age: 56 Year
  Sex: Female

DRUGS (2)
  1. INDOCIN I.V. [Suspect]
     Indication: COMPLETED SUICIDE
     Dosage: PO
     Route: 048
  2. ASPIRIN [Suspect]
     Indication: COMPLETED SUICIDE
     Dosage: PO
     Route: 048

REACTIONS (13)
  - ANION GAP INCREASED [None]
  - ATRIAL TACHYCARDIA [None]
  - BLOOD PH DECREASED [None]
  - BLOOD PH INCREASED [None]
  - COMPLETED SUICIDE [None]
  - DYSPNOEA [None]
  - HYPERHIDROSIS [None]
  - INCORRECT DOSE ADMINISTERED [None]
  - PCO2 DECREASED [None]
  - PCO2 INCREASED [None]
  - PO2 DECREASED [None]
  - RESTLESSNESS [None]
  - VOMITING [None]
